FAERS Safety Report 22212248 (Version 2)
Quarter: 2023Q2

REPORT INFORMATION
  Report Type: Spontaneous
  Country: US (occurrence: US)
  Receive Date: 20230414
  Receipt Date: 20230529
  Transmission Date: 20230721
  Serious: Yes (Other)
  Sender: FDA-Public Use
  Company Number: US-PFIZER INC-PV202300034282

PATIENT
  Age: 82 Year
  Sex: Male
  Weight: 81.633 kg

DRUGS (45)
  1. VYNDAMAX [Suspect]
     Active Substance: TAFAMIDIS
     Indication: Cardiac amyloidosis
     Dosage: 61 MG, 1X/DAY
     Dates: start: 202105
  2. FISH OIL [Concomitant]
     Active Substance: FISH OIL
     Dosage: 565 MG
     Dates: end: 20220623
  3. OMEPRAZOLE [Concomitant]
     Active Substance: OMEPRAZOLE
     Indication: Antacid therapy
     Dosage: 20 MG, 1X/DAY
     Dates: end: 20221121
  4. SIMVASTATIN [Concomitant]
     Active Substance: SIMVASTATIN
     Indication: Blood cholesterol abnormal
     Dosage: 40 MG, 1X/DAY
  5. EZETIMIBE [Concomitant]
     Active Substance: EZETIMIBE
     Indication: Blood cholesterol abnormal
     Dosage: 10 MG, 1X/DAY
  6. VITAMIN D3 [Concomitant]
     Active Substance: CHOLECALCIFEROL
     Indication: Supplementation therapy
     Dosage: 1000 IU, 1X/DAY
  7. VITAMIN B12 [Concomitant]
     Active Substance: CYANOCOBALAMIN
     Dosage: 500 UG (3 PER WEEK)
  8. RETINOL [Concomitant]
     Active Substance: RETINOL
     Dosage: 2400 UG, ALTERNATE DAY
  9. MINERALS\VITAMINS [Concomitant]
     Active Substance: MINERALS\VITAMINS
     Dosage: UNK, 1X/DAY
  10. COLCHICINE [Concomitant]
     Active Substance: COLCHICINE
     Indication: Gout
     Dosage: 0.6 MG, 2X/DAY AS NEEDED
     Dates: start: 20200615
  11. FLUOCINONIDE [Concomitant]
     Active Substance: FLUOCINONIDE
     Indication: Skin irritation
     Dosage: UNK, 2X/DAY
  12. KETOCONAZOLE [Concomitant]
     Active Substance: KETOCONAZOLE
     Indication: Dandruff
     Dosage: 2 X PER WEEK
  13. FLUTICASONE PROPIONATE [Concomitant]
     Active Substance: FLUTICASONE PROPIONATE
     Indication: Cough
     Dosage: 50 UG, 2X/DAY NOSE SPRAY WHEN NEEDED
  14. ALENDRONATE [Concomitant]
     Active Substance: ALENDRONATE SODIUM
     Indication: Osteitis deformans
     Dosage: 70 MG, WEEKLY (1 PER WEEK)
  15. FUROSEMIDE [Concomitant]
     Active Substance: FUROSEMIDE
     Indication: Echo virus infection
     Dosage: 40 MG, ALTERNATE DAY
  16. ALLOPURINOL [Concomitant]
     Active Substance: ALLOPURINOL
     Indication: Gout
     Dosage: 300 MG, 1X/DAY
  17. MUPIROCIN [Concomitant]
     Active Substance: MUPIROCIN
     Dosage: UNK, AS NEEDED
  18. SPIRONOLACTONE [Concomitant]
     Active Substance: SPIRONOLACTONE
     Dosage: 25 MG, ALTERNATE DAY
  19. ELIQUIS [Concomitant]
     Active Substance: APIXABAN
     Indication: Thrombosis
     Dosage: 2.5 MG, 2X/DAY
  20. AMIODARONE [Concomitant]
     Active Substance: AMIODARONE
     Indication: Heart rate irregular
     Dosage: 200 MG, 1X/DAY
  21. PANTOPRAZOLE [Concomitant]
     Active Substance: PANTOPRAZOLE
     Indication: Antacid therapy
     Dosage: 40 MG, 1X/DAY
     Dates: start: 20221122
  22. BETAMETHASONE [Concomitant]
     Active Substance: BETAMETHASONE
     Indication: Dandruff
     Dosage: UNK, 2X/DAY
     Dates: end: 20221031
  23. ASPIRIN [Concomitant]
     Active Substance: ASPIRIN
     Indication: Anticoagulant therapy
     Dosage: 81 MG, 1X/DAY
  24. PLAVIX [Concomitant]
     Active Substance: CLOPIDOGREL BISULFATE
     Indication: Anticoagulant therapy
     Dosage: 75 MG, 1X/DAY
     Dates: end: 202005
  25. LIALDA [Concomitant]
     Active Substance: MESALAMINE
     Indication: Colon injury
     Dosage: UNK, 2X/DAY
     Dates: end: 202203
  26. ANDROGEL [Concomitant]
     Active Substance: TESTOSTERONE
     Dosage: UNK (DAILY TWO PUMPS)
     Dates: start: 201204
  27. TESTOSTERONE [Concomitant]
     Active Substance: TESTOSTERONE
     Dosage: 200 MG, EVERY 3 WEEKS
  28. WELCHOL [Concomitant]
     Active Substance: COLESEVELAM HYDROCHLORIDE
     Indication: Gallbladder disorder
     Dosage: 625 MG, AS NEEDED (ON HOLD)
  29. VIAGRA [Concomitant]
     Active Substance: SILDENAFIL CITRATE
     Indication: Erectile dysfunction
     Dosage: 50 MG, AS NEEDED
  30. IBANDRONATE SODIUM [Concomitant]
     Active Substance: IBANDRONATE SODIUM
     Dosage: 150 MG, 1X/DAY
  31. JUBLIA [Concomitant]
     Active Substance: EFINACONAZOLE
     Indication: Fungal infection
     Dosage: UNK, 1X/DAY
  32. FISH OIL [Concomitant]
     Active Substance: FISH OIL
     Indication: Blood cholesterol abnormal
     Dosage: 180 MG, 2X/DAY
  33. PREDNISONE [Concomitant]
     Active Substance: PREDNISONE
     Indication: Rash
     Dosage: UNK
     Dates: start: 2012
  34. LIDOCAINE [Concomitant]
     Active Substance: LIDOCAINE
     Indication: Pain
     Dosage: UNK
  35. PRILOCAINE [Concomitant]
     Active Substance: PRILOCAINE
     Dosage: UNK
  36. LAMOTRIGINE [Concomitant]
     Active Substance: LAMOTRIGINE
     Dosage: UNK
  37. MELOXICAM [Concomitant]
     Active Substance: MELOXICAM
     Dosage: UNK
  38. RISEDRONATE SODIUM [Concomitant]
     Active Substance: RISEDRONATE SODIUM
     Dosage: UNK
  39. TETANUS TOXOID ADSORBED (VACCINE) [Concomitant]
     Active Substance: CLOSTRIDIUM TETANI TOXOID ANTIGEN (FORMALDEHYDE INACTIVATED)
     Indication: Immunisation
     Dosage: DOSE NUMBER UNKNOWN, SINGLE
     Dates: start: 2022, end: 2022
  40. INFLUENZA VIRUS VACCINE [Concomitant]
     Active Substance: INFLUENZA VIRUS VACCINE
     Indication: Immunisation
     Dosage: DOSE NUMBER UNKNOWN, SINGLE
     Dates: start: 20221022, end: 20221022
  41. COVID-19 VACCINE [Concomitant]
     Indication: COVID-19 immunisation
     Dosage: DOSE 1, SINGLE
     Dates: start: 20210128, end: 20210128
  42. COVID-19 VACCINE [Concomitant]
     Dosage: DOSE 2, SINGLE
     Dates: start: 20210218, end: 20210218
  43. COVID-19 VACCINE [Concomitant]
     Dosage: DOSE 3 (BOOSTER), SINGLE
     Dates: start: 20220104, end: 20220104
  44. HEPATITIS A VIRUS STRAIN HM175 ANTIGEN (FORMALDEHYDE INACTIVATED) [Concomitant]
     Active Substance: HEPATITIS A VIRUS STRAIN HM175 ANTIGEN (FORMALDEHYDE INACTIVATED)
     Indication: Immunisation
     Dosage: DOSE NUMBER UNKNOWN, SINGLE
     Dates: start: 20230123, end: 20230123
  45. HEPATITIS B VIRUS VACCINE [Concomitant]
     Active Substance: HEPATITIS B VIRUS VACCINE
     Indication: Immunisation
     Dosage: DOSE NUMBER UNKNOWN, SINGLE
     Dates: start: 20230123, end: 20230123

REACTIONS (13)
  - Atrial fibrillation [Unknown]
  - Mitral valve incompetence [Unknown]
  - Cataract [Unknown]
  - Cerebrovascular accident [Unknown]
  - Gastrointestinal amyloidosis [Unknown]
  - Cardioversion [Unknown]
  - Arrhythmia supraventricular [Unknown]
  - Cardiac hypertrophy [Unknown]
  - Retching [Unknown]
  - Gallbladder disorder [Unknown]
  - Liver disorder [Unknown]
  - Gastritis [Unknown]
  - Gastric polyps [Unknown]

NARRATIVE: CASE EVENT DATE: 20210603
